FAERS Safety Report 23138327 (Version 1)
Quarter: 2023Q4

REPORT INFORMATION
  Report Type: Spontaneous
  Country: US (occurrence: None)
  Receive Date: 20231101
  Receipt Date: 20231101
  Transmission Date: 20240110
  Serious: Yes (unspecified)
  Sender: FDA-Public Use
  Company Number: None

PATIENT
  Age: 47 Year
  Sex: Female
  Weight: 71.1 kg

DRUGS (1)
  1. EPSOLAY [Suspect]
     Active Substance: BENZOYL PEROXIDE
     Indication: Rosacea
     Dates: start: 20230908, end: 20230911

REACTIONS (3)
  - Application site rash [None]
  - Application site vesicles [None]
  - Rash [None]

NARRATIVE: CASE EVENT DATE: 20230911
